FAERS Safety Report 6656840-1 (Version None)
Quarter: 2010Q1

REPORT INFORMATION
  Report Type: 
  Country: None (occurrence: None)
  Receive Date: 20100325
  Receipt Date: 20100315
  Transmission Date: 20100710
  Serious: Yes (Other)
  Sender: FDA-Public Use
  Company Number: 2010030034

PATIENT
  Age: 71 Year
  Sex: Female

DRUGS (7)
  1. SOMA [Suspect]
  2. XANAX [Suspect]
     Dosage: 1 MG
  3. NEURONTIN [Suspect]
  4. MORPHINE SULFATE INJ [Suspect]
  5. OXYCODONE HCL [Suspect]
     Dosage: 3 MG
  6. ROXICODONE [Suspect]
  7. OPANA [Suspect]

REACTIONS (10)
  - ACTIVITIES OF DAILY LIVING IMPAIRED [None]
  - DISTURBANCE IN ATTENTION [None]
  - FAMILY STRESS [None]
  - FIBROMYALGIA [None]
  - IMPAIRED WORK ABILITY [None]
  - INFLUENZA LIKE ILLNESS [None]
  - INSOMNIA [None]
  - LIGAMENT PAIN [None]
  - SOCIAL PROBLEM [None]
  - TENDON PAIN [None]
